FAERS Safety Report 9867054 (Version 2)
Quarter: 2014Q1

REPORT INFORMATION
  Report Type: Report from Study
  Country: JP (occurrence: JP)
  Receive Date: 20140204
  Receipt Date: 20140326
  Transmission Date: 20141002
  Serious: Yes (Hospitalization)
  Sender: FDA-Public Use
  Company Number: JP-JNJFOC-20140119186

PATIENT
  Age: 62 Year
  Sex: Male
  Weight: 65 kg

DRUGS (19)
  1. GOLIMUMAB [Suspect]
     Indication: COLITIS ULCERATIVE
     Route: 058
     Dates: start: 20140107, end: 20140107
  2. GOLIMUMAB [Suspect]
     Indication: COLITIS ULCERATIVE
     Route: 058
     Dates: start: 20131224, end: 20131224
  3. LEUKERIN [Concomitant]
     Indication: COLITIS ULCERATIVE
     Route: 048
     Dates: start: 20121025, end: 20140201
  4. VANCOMYCIN HYDROCHLORIDE [Concomitant]
     Route: 048
     Dates: start: 20140204, end: 20140217
  5. PREDONINE [Concomitant]
     Indication: COLITIS ULCERATIVE
     Route: 041
     Dates: start: 20140316
  6. PREDONINE [Concomitant]
     Indication: COLITIS ULCERATIVE
     Route: 041
     Dates: start: 20140302, end: 20140315
  7. PREDONINE [Concomitant]
     Indication: COLITIS ULCERATIVE
     Route: 041
     Dates: start: 20140201, end: 20140214
  8. PREDONINE [Concomitant]
     Indication: COLITIS ULCERATIVE
     Route: 041
     Dates: start: 20140215, end: 20140301
  9. IMIPENEM/CILASTATIN SODIUM [Concomitant]
     Indication: COLITIS ULCERATIVE
     Route: 041
     Dates: start: 20140201, end: 20140203
  10. BONALON [Concomitant]
     Indication: OSTEOPOROSIS PROPHYLAXIS
     Route: 048
     Dates: start: 20140204
  11. ELNEOPA NO 1 [Concomitant]
     Indication: COLITIS ULCERATIVE
     Route: 041
     Dates: start: 20140131, end: 20140203
  12. PROGRAF [Concomitant]
     Indication: COLITIS ULCERATIVE
     Route: 048
     Dates: start: 20140306
  13. PROGRAF [Concomitant]
     Indication: COLITIS ULCERATIVE
     Route: 048
     Dates: start: 20140130, end: 20140305
  14. PROGRAF [Concomitant]
     Indication: COLITIS ULCERATIVE
     Route: 048
     Dates: start: 20140129, end: 20140129
  15. ELNEOPA NO 2 [Concomitant]
     Indication: COLITIS ULCERATIVE
     Route: 041
     Dates: start: 20140204, end: 20140228
  16. PREDONEMA [Concomitant]
     Indication: COLITIS ULCERATIVE
     Route: 054
     Dates: start: 20140309
  17. GANCICLOVIR [Concomitant]
     Indication: COLITIS ULCERATIVE
     Route: 041
     Dates: start: 20140219, end: 20140224
  18. LANSOPRAZOLE [Concomitant]
     Indication: PROPHYLAXIS AGAINST GASTROINTESTINAL ULCER
     Route: 048
     Dates: start: 20140201, end: 20140204
  19. RINDERON [Concomitant]
     Indication: PROPHYLAXIS AGAINST GASTROINTESTINAL ULCER
     Route: 048
     Dates: start: 20140205

REACTIONS (2)
  - Colitis ulcerative [Recovered/Resolved]
  - Polyp [Recovered/Resolved]
